FAERS Safety Report 4888195-7 (Version None)
Quarter: 2006Q1

REPORT INFORMATION
  Report Type: 
  Country: None (occurrence: None)
  Receive Date: 20060119
  Receipt Date: 20060106
  Transmission Date: 20060701
  Serious: Yes (Disabling, Other)
  Sender: FDA-Public Use
  Company Number: 2006006170

PATIENT
  Age: 54 Year
  Sex: Male
  Weight: 81.1939 kg

DRUGS (13)
  1. ACCUPRIL [Suspect]
     Indication: CARDIAC DISORDER
     Dates: start: 20020101, end: 20051201
  2. CLARITIN-D [Suspect]
     Indication: MULTIPLE ALLERGIES
  3. DRIXORAL [Suspect]
     Indication: MULTIPLE ALLERGIES
  4. TOPROL-XL [Suspect]
     Indication: ILL-DEFINED DISORDER
     Dosage: 25 MG,
  5. WELLBUTRIN XL [Concomitant]
  6. LEXAPRO [Concomitant]
  7. METADATE CD [Concomitant]
  8. LAMICTAL [Concomitant]
  9. LIPITOR [Concomitant]
  10. FLOMAX ^CHIESI^ (MORNIFLUMATE) [Concomitant]
  11. SEROQUEL [Concomitant]
  12. ASPIRIN [Concomitant]
  13. VITAMINS (VITAMINS) [Concomitant]

REACTIONS (9)
  - ANGINA PECTORIS [None]
  - DIFFICULTY IN WALKING [None]
  - DIZZINESS [None]
  - DRUG INTERACTION [None]
  - EXERCISE TOLERANCE DECREASED [None]
  - HYPOTENSION [None]
  - LOSS OF CONSCIOUSNESS [None]
  - PAIN [None]
  - ROAD TRAFFIC ACCIDENT [None]
